FAERS Safety Report 23294685 (Version 1)
Quarter: 2023Q4

REPORT INFORMATION
  Report Type: Spontaneous
  Country: US (occurrence: None)
  Receive Date: 20231213
  Receipt Date: 20231213
  Transmission Date: 20240110
  Serious: Yes (Other)
  Sender: FDA-Public Use
  Company Number: None

PATIENT
  Age: 36 Year
  Sex: Female
  Weight: 85.05 kg

DRUGS (1)
  1. VIVITROL [Suspect]
     Active Substance: NALTREXONE
     Indication: Product used for unknown indication
     Dosage: OTHER QUANTITY : 1 INJECTION(S);?OTHER FREQUENCY : ONCE A MONTH;?OTHER ROUTE : INJECTION TO THE BUTT
     Route: 050
     Dates: start: 20231003, end: 20231031

REACTIONS (6)
  - Hyperhidrosis [None]
  - Nasopharyngitis [None]
  - Chills [None]
  - Skin disorder [None]
  - Arthralgia [None]
  - Abdominal pain upper [None]

NARRATIVE: CASE EVENT DATE: 20231211
